FAERS Safety Report 6980613-3 (Version None)
Quarter: 2010Q3

REPORT INFORMATION
  Report Type: 
  Country: None (occurrence: None)
  Receive Date: 20100914
  Receipt Date: 20100902
  Transmission Date: 20110219
  Serious: Yes (Hospitalization, Other)
  Sender: FDA-Public Use
  Company Number: BR-SANOFI-AVENTIS-2010SA054516

PATIENT
  Sex: Male
  Weight: 70 kg

DRUGS (3)
  1. LANTUS [Suspect]
     Route: 058
     Dates: start: 20070101
  2. OPTIPEN [Suspect]
  3. DRUG USED IN DIABETES [Suspect]

REACTIONS (2)
  - MALAISE [None]
  - RENAL IMPAIRMENT [None]
